FAERS Safety Report 14483750 (Version 1)
Quarter: 2018Q1

REPORT INFORMATION
  Report Type: Spontaneous
  Country: US (occurrence: US)
  Receive Date: 20180205
  Receipt Date: 20180205
  Transmission Date: 20180509
  Serious: Yes (Hospitalization)
  Sender: FDA-Public Use
  Company Number: US-ROCHE-2061111

PATIENT
  Age: 81 Year
  Sex: Female
  Weight: 88.53 kg

DRUGS (2)
  1. ACTEMRA [Suspect]
     Active Substance: TOCILIZUMAB
     Indication: RHEUMATOID ARTHRITIS
     Dosage: TWO 80MG VIALS, ONE 200 MG VIAL
     Route: 042
     Dates: start: 20171219
  2. ACTEMRA [Suspect]
     Active Substance: TOCILIZUMAB
     Dosage: TWO 80MG VIALS, ONE 200 MG VIAL ;ONGOING: NO
     Route: 042
     Dates: start: 20180122

REACTIONS (4)
  - Seizure [Unknown]
  - Loss of consciousness [Unknown]
  - Epistaxis [Unknown]
  - Atrial fibrillation [Unknown]

NARRATIVE: CASE EVENT DATE: 20180122
